FAERS Safety Report 4349635-5 (Version None)
Quarter: 2004Q2

REPORT INFORMATION
  Report Type: 
  Country: None (occurrence: None)
  Receive Date: 20040427
  Receipt Date: 20031105
  Transmission Date: 20050107
  Serious: No
  Sender: FDA-Public Use
  Company Number: 000690

PATIENT
  Age: 46 Year
  Sex: Male

DRUGS (4)
  1. ZEVALIN [Suspect]
     Indication: NON-HODGKIN'S LYMPHOMA
     Dosage: 425 MG, RITUXAN DOSE 1, INTRAVENOUS
     Route: 042
     Dates: start: 20031015, end: 20031015
  2. ZEVALIN [Suspect]
     Indication: NON-HODGKIN'S LYMPHOMA
     Dosage: 5 MCI, IN-[111] ZEVALIN, INTRAVENOUS
     Route: 042
     Dates: start: 20031015, end: 20031015
  3. ZEVALIN [Suspect]
     Indication: NON-HODGKIN'S LYMPHOMA
     Dosage: 425 MG, RITUXAN DOSE 2, INTRAVENOUS
     Route: 042
     Dates: start: 20031022, end: 20031022
  4. ZEVALIN [Suspect]
     Indication: NON-HODGKIN'S LYMPHOMA
     Dosage: 26.1 MCI,Y-[90] ZEVALIN, INTRAVENOUS
     Route: 042
     Dates: start: 20031022, end: 20031022

REACTIONS (1)
  - AGEUSIA [None]
